FAERS Safety Report 8125597-X (Version None)
Quarter: 2012Q1

REPORT INFORMATION
  Report Type: 
  Country: None (occurrence: None)
  Receive Date: 20120209
  Receipt Date: 20120206
  Transmission Date: 20120608
  Serious: Yes (Other)
  Sender: FDA-Public Use
  Company Number: US-PFIZER INC-2011307025

PATIENT
  Sex: Female

DRUGS (3)
  1. PLAVIX [Interacting]
     Dosage: 75 MG, UNK
     Route: 048
  2. LIPITOR [Suspect]
     Indication: BLOOD CHOLESTEROL ABNORMAL
     Dosage: 40 MG, UNK
     Route: 048
     Dates: start: 20100101
  3. LIPITOR [Interacting]
     Indication: LOW DENSITY LIPOPROTEIN ABNORMAL

REACTIONS (4)
  - MYALGIA [None]
  - MUSCULOSKELETAL DISCOMFORT [None]
  - DRUG INTERACTION [None]
  - ARTHRALGIA [None]
